FAERS Safety Report 23323170 (Version 1)
Quarter: 2023Q4

REPORT INFORMATION
  Report Type: Spontaneous
  Country: US (occurrence: None)
  Receive Date: 20231220
  Receipt Date: 20231220
  Transmission Date: 20240110
  Serious: No
  Sender: FDA-Public Use
  Company Number: US-ROCHE-3340338

PATIENT
  Sex: Male

DRUGS (4)
  1. RITUXAN [Suspect]
     Active Substance: RITUXIMAB
     Indication: Burkitt^s lymphoma
     Route: 065
     Dates: start: 20230219
  2. IFOSFAMIDE [Concomitant]
     Active Substance: IFOSFAMIDE
     Indication: Burkitt^s lymphoma
     Dosage: ONGOING: NO
     Dates: start: 20230219
  3. CARBOPLATIN [Concomitant]
     Active Substance: CARBOPLATIN
     Indication: Burkitt^s lymphoma
     Dosage: ONGOING : NO
     Dates: start: 20230219
  4. ETOPOSIDE [Concomitant]
     Active Substance: ETOPOSIDE
     Indication: Burkitt^s lymphoma
     Dosage: ONGOING: NO
     Dates: start: 20230219

REACTIONS (3)
  - Neoplasm progression [Unknown]
  - Immunodeficiency [Not Recovered/Not Resolved]
  - Full blood count abnormal [Unknown]
